FAERS Safety Report 11546340 (Version 1)
Quarter: 2015Q3

REPORT INFORMATION
  Report Type: Spontaneous
  Country: US (occurrence: US)
  Receive Date: 20150924
  Receipt Date: 20150924
  Transmission Date: 20151125
  Serious: No
  Sender: FDA-Public Use
  Company Number: US-MYLANLABS-2015M1012108

PATIENT
  Sex: Female

DRUGS (1)
  1. SPIRONOLACTONE TABLETS, USP [Suspect]
     Active Substance: SPIRONOLACTONE
     Dosage: 100 MG, QD
     Route: 048
     Dates: start: 20150330, end: 20150409

REACTIONS (3)
  - Somnolence [Recovered/Resolved]
  - Retching [Recovered/Resolved]
  - Dysgeusia [Recovered/Resolved]

NARRATIVE: CASE EVENT DATE: 20150330
